FAERS Safety Report 9346835 (Version 1)
Quarter: 2013Q2

REPORT INFORMATION
  Report Type: Spontaneous
  Country: US (occurrence: US)
  Receive Date: 20130613
  Receipt Date: 20130613
  Transmission Date: 20140414
  Serious: Yes (Other)
  Sender: FDA-Public Use
  Company Number: US-ASTRAZENECA-2013SE42098

PATIENT
  Age: 43 Year
  Sex: Female
  Weight: 72.6 kg

DRUGS (5)
  1. SEROQUEL [Suspect]
     Indication: BIPOLAR DISORDER
     Route: 048
     Dates: start: 201305
  2. SEROQUEL [Suspect]
     Indication: BIPOLAR DISORDER
     Dosage: DIVIDED THE PILLS TO TAKE ONE PIECE AT NIGHT BUT SHE IS NOT SURE IF IT WAS SPLIT IN 2 OR 3
     Route: 048
     Dates: start: 20130601, end: 201306
  3. DEPAKOTE [Concomitant]
     Indication: BIPOLAR DISORDER
     Route: 065
  4. CELEXA [Concomitant]
     Indication: DEPRESSION
  5. XANAX [Concomitant]
     Indication: ANXIETY

REACTIONS (12)
  - Intentional self-injury [Unknown]
  - Agitation [Unknown]
  - Hyperhidrosis [Unknown]
  - Malaise [Unknown]
  - Insomnia [Unknown]
  - Impaired work ability [Unknown]
  - Abnormal behaviour [Unknown]
  - Feeling abnormal [Unknown]
  - Memory impairment [Unknown]
  - Tremor [Unknown]
  - Drug withdrawal syndrome [Unknown]
  - Intentional drug misuse [Unknown]
